FAERS Safety Report 10036036 (Version 1)
Quarter: 2014Q1

REPORT INFORMATION
  Report Type: Spontaneous
  Country: GB (occurrence: GB)
  Receive Date: 20140325
  Receipt Date: 20140325
  Transmission Date: 20141002
  Serious: Yes (Other)
  Sender: FDA-Public Use
  Company Number: GB-WATSON-2014-05297

PATIENT
  Age: 46 Year
  Sex: Male
  Weight: 95 kg

DRUGS (2)
  1. ALLOPURINOL (UNKNOWN) [Suspect]
     Indication: GOUT
     Dosage: 300 MG, UNKNOWN
     Route: 048
     Dates: start: 20131219, end: 20140210
  2. OMEPRAZOLE [Concomitant]
     Indication: PRODUCT USED FOR UNKNOWN INDICATION
     Dosage: UNK
     Route: 065

REACTIONS (6)
  - Mouth ulceration [Unknown]
  - Oral pain [Not Recovered/Not Resolved]
  - Dry mouth [Unknown]
  - Tongue eruption [Unknown]
  - Glossodynia [Unknown]
  - Oropharyngeal pain [Unknown]
